FAERS Safety Report 18607517 (Version 1)
Quarter: 2020Q4

REPORT INFORMATION
  Report Type: Spontaneous
  Country: DK (occurrence: DK)
  Receive Date: 20201212
  Receipt Date: 20201212
  Transmission Date: 20210114
  Serious: Yes (Death)
  Sender: FDA-Public Use
  Company Number: DK-ROCHE-2731444

PATIENT
  Age: 79 Year
  Sex: Male

DRUGS (3)
  1. ANCOZAN COMP [Concomitant]
     Active Substance: HYDROCHLOROTHIAZIDE\LOSARTAN POTASSIUM
     Indication: HYPERTENSION
     Dosage: STRENGTH: 100 + 25 MG.
     Route: 048
     Dates: start: 20140610
  2. ACTILYSE [Suspect]
     Active Substance: ALTEPLASE
     Indication: CEREBROVASCULAR ACCIDENT
     Dosage: DOSAGE: AFTER WEIGHT. STRENGTH: UNKNOWN.
     Route: 042
     Dates: start: 20201119
  3. RELVAR ELLIPTA [FLUTICASONE FUROATE;VILANTEROL TRIFENATATE] [Concomitant]
     Active Substance: FLUTICASONE FUROATE\VILANTEROL TRIFENATATE
     Indication: ASTHMA
     Dosage: STRENGTH: 184 MICROGRAM + 22 MICROGRAM
     Route: 055
     Dates: start: 20200729

REACTIONS (4)
  - Headache [Fatal]
  - Cerebral haemorrhage [Fatal]
  - Paralysis [Fatal]
  - Aphasia [Fatal]

NARRATIVE: CASE EVENT DATE: 20201119
